FAERS Safety Report 5946288-7 (Version None)
Quarter: 2008Q4

REPORT INFORMATION
  Report Type: 
  Country: None (occurrence: None)
  Receive Date: 20081106
  Receipt Date: 20081106
  Transmission Date: 20090506
  Serious: Yes (Hospitalization)
  Sender: FDA-Public Use
  Company Number: None

PATIENT
  Age: 23 Year
  Sex: Female
  Weight: 68.0396 kg

DRUGS (1)
  1. ABILIFY [Suspect]
     Indication: DEPRESSION
     Dosage: 15 MG 2 TIMES DAILY PO
     Route: 048
     Dates: start: 20080831, end: 20080925

REACTIONS (4)
  - CONVULSION [None]
  - MASKED FACIES [None]
  - MOVEMENT DISORDER [None]
  - NECK PAIN [None]
